FAERS Safety Report 21465192 (Version 10)
Quarter: 2023Q1

REPORT INFORMATION
  Report Type: Report from Study
  Country: CN (occurrence: None)
  Receive Date: 20221017
  Receipt Date: 20230112
  Transmission Date: 20230418
  Serious: Yes (Hospitalization)
  Sender: FDA-Public Use
  Company Number: CN-Eisai Inc (Eisai China)-EC-2022-125777

PATIENT
  Age: 64 Year
  Sex: Male
  Weight: 64 kg

DRUGS (19)
  1. LENVATINIB [Suspect]
     Active Substance: LENVATINIB
     Indication: Oesophageal cancer metastatic
     Route: 048
     Dates: start: 20220913, end: 20220913
  2. LENVATINIB [Suspect]
     Active Substance: LENVATINIB
     Route: 048
     Dates: start: 20221012
  3. PEMBROLIZUMAB [Suspect]
     Active Substance: PEMBROLIZUMAB
     Indication: Oesophageal cancer metastatic
     Route: 041
     Dates: start: 20220913, end: 20220913
  4. PEMBROLIZUMAB [Suspect]
     Active Substance: PEMBROLIZUMAB
     Route: 041
     Dates: start: 20221110
  5. CISPLATIN [Suspect]
     Active Substance: CISPLATIN
     Indication: Oesophageal cancer metastatic
     Route: 042
     Dates: start: 20220914, end: 20220914
  6. CISPLATIN [Suspect]
     Active Substance: CISPLATIN
     Dosage: UNKNOWN DOSE
     Route: 042
     Dates: start: 20221012
  7. FLUOROURACIL [Suspect]
     Active Substance: FLUOROURACIL
     Indication: Oesophageal cancer metastatic
     Route: 042
     Dates: start: 20220914, end: 20220919
  8. FLUOROURACIL [Suspect]
     Active Substance: FLUOROURACIL
     Route: 042
     Dates: start: 20221012
  9. OXYCODONE HYDROCHLORIDE [Concomitant]
     Active Substance: OXYCODONE HYDROCHLORIDE
     Dates: start: 20220908
  10. FAMOTIDINE [Concomitant]
     Active Substance: FAMOTIDINE
     Route: 042
     Dates: start: 20220913, end: 20220921
  11. ASCORBIC ACID [Concomitant]
     Active Substance: ASCORBIC ACID
     Route: 042
     Dates: start: 20220913, end: 20220921
  12. PYRIDOXINE [Concomitant]
     Active Substance: PYRIDOXINE
     Route: 042
     Dates: start: 20220913, end: 20220921
  13. BUCLADESINE CALCIUM [Concomitant]
     Active Substance: BUCLADESINE CALCIUM
     Route: 042
     Dates: start: 20220913, end: 20220921
  14. HERBALS\DIAMMONIUM GLYCYRRHIZINATE [Concomitant]
     Active Substance: HERBALS\DIAMMONIUM GLYCYRRHIZINATE
     Route: 042
     Dates: start: 20220913, end: 20220921
  15. GRANISETRON HYDROCHLORIDE [Concomitant]
     Active Substance: GRANISETRON HYDROCHLORIDE
     Dates: start: 20220913, end: 20220920
  16. APREPITANT [Concomitant]
     Active Substance: APREPITANT
     Dates: start: 20220914, end: 20220918
  17. CHLORPROMAZINE HYDROCHLORIDE [Concomitant]
     Active Substance: CHLORPROMAZINE HYDROCHLORIDE
     Route: 030
     Dates: start: 20220916, end: 20220916
  18. METOCLOPRAMIDE HYDROCHLORIDE [Concomitant]
     Active Substance: METOCLOPRAMIDE HYDROCHLORIDE
     Route: 030
     Dates: start: 20220913, end: 20220915
  19. BUMETANIDE [Concomitant]
     Active Substance: BUMETANIDE
     Dates: start: 20220913, end: 20220915

REACTIONS (1)
  - Decreased appetite [Recovered/Resolved]

NARRATIVE: CASE EVENT DATE: 20220916
